FAERS Safety Report 4839624-6 (Version None)
Quarter: 2005Q4

REPORT INFORMATION
  Report Type: 
  Country: None (occurrence: None)
  Receive Date: 20051125
  Receipt Date: 20051110
  Transmission Date: 20060501
  Serious: Yes (Hospitalization)
  Sender: FDA-Public Use
  Company Number: 02100-JPN-05-0530

PATIENT
  Age: 60 Year
  Sex: Female

DRUGS (5)
  1. CILOSTAZOL [Suspect]
     Indication: CEREBRAL INFARCTION
     Dosage: ONE OF 200 MG OR 81 MG, ORAL
     Route: 048
     Dates: start: 20050316, end: 20051030
  2. IBUDILAST [Concomitant]
  3. BARNIDIPINE HYDROCHLORIDE [Concomitant]
  4. TELMISARTAN [Concomitant]
  5. ASPIRIN [Suspect]
     Indication: CEREBRAL INFARCTION

REACTIONS (4)
  - ABDOMINAL PAIN [None]
  - FEELING ABNORMAL [None]
  - LOWER GASTROINTESTINAL HAEMORRHAGE [None]
  - NAUSEA [None]
